FAERS Safety Report 21130525 (Version 1)
Quarter: 2022Q3

REPORT INFORMATION
  Report Type: Report from Study
  Country: IT (occurrence: None)
  Receive Date: 20220726
  Receipt Date: 20220726
  Transmission Date: 20221026
  Serious: Yes (Hospitalization)
  Sender: FDA-Public Use
  Company Number: IT-ROCHE-2791037

PATIENT
  Age: 71 Year
  Sex: Female

DRUGS (21)
  1. PRALSETINIB [Suspect]
     Active Substance: PRALSETINIB
     Indication: Lung cancer metastatic
     Dosage: ON 14/JUL/2019, SHE RECEIVED THE LAST DOSE OF THE STUDY DRUG PRIOR TO THE SAE.
     Route: 048
     Dates: start: 20190619
  2. DENOSUMAB [Concomitant]
     Active Substance: DENOSUMAB
     Route: 058
     Dates: start: 20190318
  3. NALOXONE HYDROCHLORIDE\OXYCODONE HYDROCHLORIDE [Concomitant]
     Active Substance: NALOXONE HYDROCHLORIDE\OXYCODONE HYDROCHLORIDE
     Route: 048
     Dates: start: 20190516, end: 20190623
  4. ACETAMINOPHEN [Concomitant]
     Active Substance: ACETAMINOPHEN
     Route: 048
     Dates: start: 20190514, end: 20190623
  5. LYRICA [Concomitant]
     Active Substance: PREGABALIN
     Route: 048
     Dates: start: 20190514, end: 20190623
  6. RANITIDINE [Concomitant]
     Active Substance: RANITIDINE
     Indication: Prophylaxis
     Route: 048
     Dates: start: 20190528, end: 20190623
  7. RANITIDINE [Concomitant]
     Active Substance: RANITIDINE
     Route: 048
     Dates: start: 20190624
  8. METOPROLOL [Concomitant]
     Active Substance: METOPROLOL
     Dates: start: 2017
  9. ROSUVASTATIN [Concomitant]
     Active Substance: ROSUVASTATIN
     Route: 048
     Dates: start: 2004
  10. CLOPIDOGREL [Concomitant]
     Active Substance: CLOPIDOGREL BISULFATE
     Route: 048
     Dates: start: 2004, end: 20190702
  11. CLOPIDOGREL [Concomitant]
     Active Substance: CLOPIDOGREL BISULFATE
     Route: 048
     Dates: start: 20190703
  12. EDOXABAN [Concomitant]
     Active Substance: EDOXABAN
     Route: 048
     Dates: start: 2018
  13. CARDURA [Concomitant]
     Active Substance: DOXAZOSIN MESYLATE
     Route: 048
     Dates: start: 20190531
  14. CALCIUM [Concomitant]
     Active Substance: CALCIUM
     Indication: Nutritional supplementation
     Route: 048
     Dates: start: 20190318
  15. FERROUS SULFATE [Concomitant]
     Active Substance: FERROUS SULFATE
     Route: 048
     Dates: start: 201905, end: 20190620
  16. ALLOPURINOL [Concomitant]
     Active Substance: ALLOPURINOL
     Route: 048
     Dates: start: 201501
  17. CHOLECALCIFEROL [Concomitant]
     Active Substance: CHOLECALCIFEROL
     Dosage: 100000 UNIT
     Route: 048
     Dates: start: 20190318
  18. BROMAZEPAM [Concomitant]
     Active Substance: BROMAZEPAM
     Route: 048
     Dates: start: 20190623
  19. AMLODIPINE [Concomitant]
     Active Substance: AMLODIPINE BESYLATE
     Route: 048
     Dates: start: 20190624
  20. MICONAZOLE NITRATE [Concomitant]
     Active Substance: MICONAZOLE NITRATE
     Route: 048
     Dates: start: 20190712
  21. CLOTRIMAZOLE [Concomitant]
     Active Substance: CLOTRIMAZOLE
     Dosage: 1 APPLICATION
     Route: 061
     Dates: start: 20190712

REACTIONS (1)
  - Urosepsis [Recovered/Resolved]

NARRATIVE: CASE EVENT DATE: 20190715
